FAERS Safety Report 7795142-7 (Version None)
Quarter: 2011Q4

REPORT INFORMATION
  Report Type: 
  Country: None (occurrence: None)
  Receive Date: 20111004
  Receipt Date: 20110922
  Transmission Date: 20120403
  Serious: Yes (Other)
  Sender: FDA-Public Use
  Company Number: US-JNJFOC-20110910247

PATIENT
  Sex: Female
  Weight: 70.31 kg

DRUGS (1)
  1. REMICADE [Suspect]
     Indication: PRODUCT USED FOR UNKNOWN INDICATION
     Route: 042

REACTIONS (9)
  - AGEUSIA [None]
  - DECREASED APPETITE [None]
  - BACK PAIN [None]
  - GALLBLADDER NON-FUNCTIONING [None]
  - COLITIS [None]
  - MALAISE [None]
  - ASTHENIA [None]
  - NAUSEA [None]
  - ABNORMAL LOSS OF WEIGHT [None]
